FAERS Safety Report 6810929-2 (Version None)
Quarter: 2010Q2

REPORT INFORMATION
  Report Type: 
  Country: None (occurrence: None)
  Receive Date: 20100630
  Receipt Date: 20081107
  Transmission Date: 20101027
  Serious: No
  Sender: FDA-Public Use
  Company Number: US-PFIZER INC-2008088937

PATIENT
  Sex: Female
  Weight: 57.727 kg

DRUGS (4)
  1. ESTRING [Suspect]
     Indication: VULVOVAGINAL DRYNESS
     Dates: start: 20070101
  2. ESTRING [Suspect]
     Indication: DYSPAREUNIA
  3. ESTROGENS [Concomitant]
  4. PROGESTERONE [Concomitant]

REACTIONS (1)
  - DRUG INEFFECTIVE [None]
